FAERS Safety Report 24654944 (Version 2)
Quarter: 2025Q1

REPORT INFORMATION
  Report Type: Spontaneous
  Country: US (occurrence: US)
  Receive Date: 20241122
  Receipt Date: 20250221
  Transmission Date: 20250409
  Serious: Yes (Other)
  Sender: NEUROCRINE BIOSCIENCES
  Company Number: US-NEUROCRINE BIOSCIENCES INC.-2024NBI11440

PATIENT
  Age: 60 Year
  Sex: Female

DRUGS (22)
  1. INGREZZA [Suspect]
     Active Substance: VALBENAZINE
     Indication: Tardive dyskinesia
     Route: 048
     Dates: start: 20240429
  2. INGREZZA [Suspect]
     Active Substance: VALBENAZINE
     Route: 048
     Dates: start: 20190815, end: 20240429
  3. INGREZZA [Suspect]
     Active Substance: VALBENAZINE
     Route: 065
     Dates: end: 2019
  4. RISPERDAL [Concomitant]
     Active Substance: RISPERIDONE
     Indication: Schizophrenia
     Route: 065
  5. RISPERDAL [Concomitant]
     Active Substance: RISPERIDONE
     Indication: Psychotic disorder
     Route: 048
     Dates: start: 20190815
  6. RISPERDAL [Concomitant]
     Active Substance: RISPERIDONE
     Indication: Dystonia
  7. RISPERDAL [Concomitant]
     Active Substance: RISPERIDONE
     Indication: Hallucination
  8. LEVEMIR [Concomitant]
     Active Substance: INSULIN DETEMIR
  9. NOVOLOG [Concomitant]
     Active Substance: INSULIN ASPART
  10. FUROSEMIDE [Concomitant]
     Active Substance: FUROSEMIDE
  11. GLIMEPIRIDE [Concomitant]
     Active Substance: GLIMEPIRIDE
  12. METFORMIN HYDROCHLORIDE [Concomitant]
     Active Substance: METFORMIN HYDROCHLORIDE
  13. PRAVASTATIN SODIUM [Concomitant]
     Active Substance: PRAVASTATIN SODIUM
  14. IBUPROFEN [Concomitant]
     Active Substance: IBUPROFEN
  15. AMANTADINE [Concomitant]
     Active Substance: AMANTADINE
     Route: 048
  16. AMANTADINE [Concomitant]
     Active Substance: AMANTADINE
     Route: 048
  17. PROZAC [Concomitant]
     Active Substance: FLUOXETINE HYDROCHLORIDE
     Indication: Depression
     Route: 048
     Dates: start: 20190815
  18. PROZAC [Concomitant]
     Active Substance: FLUOXETINE HYDROCHLORIDE
     Indication: Anxiety
  19. LORAZEPAM [Concomitant]
     Active Substance: LORAZEPAM
     Indication: Agitation
     Route: 048
  20. LORAZEPAM [Concomitant]
     Active Substance: LORAZEPAM
     Indication: Anxiety
  21. SEROQUEL [Concomitant]
     Active Substance: QUETIAPINE FUMARATE
  22. ABILIFY [Concomitant]
     Active Substance: ARIPIPRAZOLE

REACTIONS (16)
  - Intellectual disability [Unknown]
  - Subarachnoid haemorrhage [Unknown]
  - Head injury [Unknown]
  - Face injury [Unknown]
  - Coordination abnormal [Unknown]
  - Dysarthria [Unknown]
  - Grunting [Unknown]
  - Muscle spasticity [Unknown]
  - Parkinsonism [Unknown]
  - Gait disturbance [Unknown]
  - Fall [Unknown]
  - Balance disorder [Unknown]
  - Drooling [Unknown]
  - Tremor [Unknown]
  - Hypokinesia [Unknown]
  - Dyskinesia [Unknown]

NARRATIVE: CASE EVENT DATE: 20230501
